FAERS Safety Report 8525726-X (Version None)
Quarter: 2012Q3

REPORT INFORMATION
  Report Type: 
  Country: None (occurrence: None)
  Receive Date: 20120720
  Receipt Date: 20120710
  Transmission Date: 20120928
  Serious: Yes (Hospitalization, Disabling, Other)
  Sender: FDA-Public Use
  Company Number: US-009507513-1112USA01089

PATIENT

DRUGS (10)
  1. FOSAMAX [Suspect]
     Indication: OSTEOPOROSIS
     Dosage: 70 MG, UNK
     Route: 048
     Dates: start: 19950101, end: 20050101
  2. FOSAMAX PLUS D [Suspect]
     Indication: OSTEOPENIA
  3. PREVACID [Concomitant]
  4. FOSAMAX PLUS D [Suspect]
     Indication: OSTEOPOROSIS
     Dosage: 70MG/2800
     Route: 048
     Dates: start: 20060424, end: 20100125
  5. VITAMIN D (UNSPECIFIED) [Concomitant]
     Dosage: 3000 U, QD
     Dates: start: 20010101
  6. FOSAMAX [Suspect]
     Indication: OSTEOPENIA
     Dosage: 70 MG, QW
     Route: 048
  7. PRILOSEC [Concomitant]
     Route: 048
     Dates: start: 19980101
  8. CALCIUM (UNSPECIFIED) [Concomitant]
     Dosage: 1200 MG, QD
     Dates: start: 20010101
  9. FOSAMAX [Suspect]
     Dosage: 70 MG, UNK
     Route: 048
     Dates: start: 20100201, end: 20100521
  10. FOSAMAX [Suspect]

REACTIONS (46)
  - FEMUR FRACTURE [None]
  - VENTRICULAR EXTRASYSTOLES [None]
  - PAIN IN EXTREMITY [None]
  - MEDICAL DEVICE PAIN [None]
  - LOW TURNOVER OSTEOPATHY [None]
  - SCIATICA [None]
  - ARTHRITIS [None]
  - ARTHRALGIA [None]
  - STRESS [None]
  - COUGH [None]
  - WEIGHT INCREASED [None]
  - AORTIC ARTERIOSCLEROSIS [None]
  - VITAMIN D DEFICIENCY [None]
  - ASTHMA [None]
  - RIB FRACTURE [None]
  - MITRAL VALVE INCOMPETENCE [None]
  - HYPOTENSION [None]
  - TOOTH DISORDER [None]
  - DIZZINESS [None]
  - BACK PAIN [None]
  - ARTHROPATHY [None]
  - DYSPNOEA [None]
  - GRIEF REACTION [None]
  - INSOMNIA [None]
  - VITAMIN B12 DEFICIENCY [None]
  - MUSCULOSKELETAL DISCOMFORT [None]
  - DYSPHAGIA [None]
  - MITRAL VALVE CALCIFICATION [None]
  - FRACTURE NONUNION [None]
  - SEBORRHOEIC KERATOSIS [None]
  - MENISCUS LESION [None]
  - INTERVERTEBRAL DISC PROTRUSION [None]
  - BENIGN RENAL NEOPLASM [None]
  - GASTRITIS [None]
  - RADIUS FRACTURE [None]
  - ADVERSE DRUG REACTION [None]
  - FLANK PAIN [None]
  - HYPOMAGNESAEMIA [None]
  - NECK PAIN [None]
  - FOREARM FRACTURE [None]
  - HYPERTENSION [None]
  - FALL [None]
  - MUSCULOSKELETAL CHEST PAIN [None]
  - NEUROPATHY PERIPHERAL [None]
  - DRUG INTOLERANCE [None]
  - DIASTOLIC DYSFUNCTION [None]
